FAERS Safety Report 11005680 (Version 1)
Quarter: 2015Q2

REPORT INFORMATION
  Report Type: Spontaneous
  Country: US (occurrence: US)
  Receive Date: 20150409
  Receipt Date: 20150409
  Transmission Date: 20150821
  Serious: No
  Sender: FDA-Public Use
  Company Number: US-ALLERGAN-1409633US

PATIENT
  Sex: Female

DRUGS (1)
  1. LUMIGAN [Suspect]
     Active Substance: BIMATOPROST
     Indication: GLAUCOMA
     Dosage: 2 GTT, QHS
     Route: 047
     Dates: start: 20140307, end: 20140411

REACTIONS (8)
  - Mental disorder [Not Recovered/Not Resolved]
  - Dry eye [Recovered/Resolved]
  - Blepharitis [Not Recovered/Not Resolved]
  - Drug hypersensitivity [Unknown]
  - Ocular hyperaemia [Recovered/Resolved]
  - Meibomian gland dysfunction [Unknown]
  - Vision blurred [Recovered/Resolved]
  - Diplopia [Recovered/Resolved]

NARRATIVE: CASE EVENT DATE: 20140408
